FAERS Safety Report 16667013 (Version 1)
Quarter: 2019Q3

REPORT INFORMATION
  Report Type: Spontaneous
  Country: NL (occurrence: NL)
  Receive Date: 20190805
  Receipt Date: 20190805
  Transmission Date: 20191004
  Serious: Yes (Other)
  Sender: FDA-Public Use
  Company Number: NL-TEVA-2019-NL-1078677

PATIENT
  Sex: Male

DRUGS (1)
  1. RIVASTIGMINE TEVA 9,5 MG/24 H [Suspect]
     Active Substance: RIVASTIGMINE
     Route: 062

REACTIONS (5)
  - Dementia [Not Recovered/Not Resolved]
  - Product quality issue [Unknown]
  - Product adhesion issue [Unknown]
  - Confusional state [Not Recovered/Not Resolved]
  - Therapeutic product effect decreased [Unknown]
